FAERS Safety Report 6370707-8 (Version None)
Quarter: 2009Q3

REPORT INFORMATION
  Report Type: 
  Country: None (occurrence: None)
  Receive Date: 20090923
  Receipt Date: 20070515
  Transmission Date: 20100115
  Serious: Yes (Other)
  Sender: FDA-Public Use
  Company Number: US-ASTRAZENECA-2006UW25446

PATIENT
  Age: 704 Month
  Sex: Male
  Weight: 90.7 kg

DRUGS (2)
  1. SEROQUEL [Suspect]
     Indication: DEPRESSION
     Dosage: 25-100 MG
     Route: 048
     Dates: start: 19990720
  2. SEROQUEL [Suspect]
     Route: 048
     Dates: start: 20010101, end: 20020101

REACTIONS (1)
  - TARDIVE DYSKINESIA [None]
